FAERS Safety Report 4891145-0 (Version None)
Quarter: 2006Q1

REPORT INFORMATION
  Report Type: 
  Country: None (occurrence: None)
  Receive Date: 20060125
  Receipt Date: 20051222
  Transmission Date: 20060701
  Serious: Yes (Death, Hospitalization)
  Sender: FDA-Public Use
  Company Number: US-MERCK-0512USA03629

PATIENT
  Age: 77 Year
  Sex: Female
  Weight: 74 kg

DRUGS (3)
  1. VIOXX [Suspect]
     Indication: ARTHRITIS
     Route: 048
     Dates: start: 19990601, end: 20031201
  2. LUMIGAN [Concomitant]
     Route: 065
  3. PILOCARPINE [Concomitant]
     Route: 065

REACTIONS (7)
  - ADVERSE EVENT [None]
  - ANKLE FRACTURE [None]
  - CHEST PAIN [None]
  - FATIGUE [None]
  - MYOCARDIAL INFARCTION [None]
  - NAIL DISCOMFORT [None]
  - PAIN IN EXTREMITY [None]
